FAERS Safety Report 5568633-7 (Version None)
Quarter: 2007Q4

REPORT INFORMATION
  Report Type: 
  Country: None (occurrence: None)
  Receive Date: 20071220
  Receipt Date: 20071212
  Transmission Date: 20080405
  Serious: Yes (Life-Threatening)
  Sender: FDA-Public Use
  Company Number: JP-ASTRAZENECA-2007SE05950

PATIENT
  Age: 29781 Day
  Sex: Female
  Weight: 54 kg

DRUGS (4)
  1. BLOPRESS TABLETS 4 [Suspect]
     Indication: HYPERTENSION
     Route: 048
     Dates: start: 20060318, end: 20071011
  2. BENET TABLETS 2.5MG [Concomitant]
     Route: 048
  3. NORVASC [Concomitant]
     Route: 048
  4. PROMAC D [Concomitant]
     Route: 048

REACTIONS (1)
  - PANCYTOPENIA [None]
